FAERS Safety Report 4430930-6 (Version None)
Quarter: 2004Q3

REPORT INFORMATION
  Report Type: 
  Country: None (occurrence: None)
  Receive Date: 20040823
  Receipt Date: 20040310
  Transmission Date: 20050211
  Serious: Yes (Death)
  Sender: FDA-Public Use
  Company Number: US-MERCK-0403USA01235

PATIENT
  Age: 66 Year
  Sex: Male
  Weight: 91 kg

DRUGS (2)
  1. VIOXX [Suspect]
     Indication: ARTHRITIS
     Route: 048
     Dates: start: 20010611, end: 20010702
  2. VIOXX [Suspect]
     Indication: GOUT
     Route: 048
     Dates: start: 20010611, end: 20010702

REACTIONS (1)
  - DEATH [None]
